FAERS Safety Report 4441304-6 (Version None)
Quarter: 2004Q3

REPORT INFORMATION
  Report Type: 
  Country: None (occurrence: None)
  Receive Date: 20040728
  Receipt Date: 20040416
  Transmission Date: 20050211
  Serious: No
  Sender: FDA-Public Use
  Company Number: USA040465237

PATIENT
  Sex: Female

DRUGS (3)
  1. STRATTERA [Suspect]
     Indication: ATTENTION DEFICIT/HYPERACTIVITY DISORDER
     Dosage: 50 MG DAY
     Dates: start: 20040315
  2. SERAX [Concomitant]
  3. ALLEGRA [Concomitant]

REACTIONS (4)
  - EYE PRURITUS [None]
  - FATIGUE [None]
  - HEADACHE [None]
  - SENSATION OF FOREIGN BODY [None]
